FAERS Safety Report 7805442-X (Version None)
Quarter: 2011Q4

REPORT INFORMATION
  Report Type: 
  Country: None (occurrence: None)
  Receive Date: 20111010
  Receipt Date: 20110930
  Transmission Date: 20120403
  Serious: Yes (Hospitalization)
  Sender: FDA-Public Use
  Company Number: US-ASTRAZENECA-2011SE58823

PATIENT
  Sex: Female

DRUGS (1)
  1. CRESTOR [Suspect]
     Route: 048

REACTIONS (5)
  - GAIT DISTURBANCE [None]
  - PAIN [None]
  - ARTHROPATHY [None]
  - MOBILITY DECREASED [None]
  - ARTHRALGIA [None]
